FAERS Safety Report 21537308 (Version 1)
Quarter: 2022Q4

REPORT INFORMATION
  Report Type: Spontaneous
  Country: FR (occurrence: FR)
  Receive Date: 20221101
  Receipt Date: 20221101
  Transmission Date: 20230112
  Serious: Yes (Hospitalization)
  Sender: FDA-Public Use
  Company Number: None

PATIENT
  Age: 73 Year
  Sex: Female
  Weight: 68 kg

DRUGS (2)
  1. OXYCONTIN [Suspect]
     Active Substance: OXYCODONE HYDROCHLORIDE
     Indication: Pain
     Dosage: 20 MILLIGRAM, DAILY
     Route: 065
     Dates: start: 20220320, end: 20220320
  2. OXYCODONE HYDROCHLORIDE [Suspect]
     Active Substance: OXYCODONE HYDROCHLORIDE
     Indication: Pain
     Dosage: 10 MG EVERY 4 HOURS WITHOUT FURTHER INDICATION
     Route: 065
     Dates: start: 20220320, end: 20220320

REACTIONS (3)
  - Altered state of consciousness [Recovered/Resolved]
  - Dyspnoea [Recovered/Resolved]
  - Overdose [Recovered/Resolved]

NARRATIVE: CASE EVENT DATE: 20220320
